FAERS Safety Report 4598479-8 (Version None)
Quarter: 2005Q1

REPORT INFORMATION
  Report Type: 
  Country: None (occurrence: None)
  Receive Date: 20050303
  Receipt Date: 20050303
  Transmission Date: 20050727
  Serious: Yes (Life-Threatening, Hospitalization)
  Sender: FDA-Public Use
  Company Number: None

PATIENT
  Age: 77 Year
  Sex: Male
  Weight: 76.4 kg

DRUGS (13)
  1. GATIFLOXACIN [Suspect]
     Indication: PNEUMONIA
     Dosage: 400 MG P.O. QD
     Route: 048
     Dates: start: 20050225, end: 20050302
  2. MORPHINE SULFATE [Concomitant]
  3. SALSALATE [Concomitant]
  4. POTASSIUM CHLORIDE [Concomitant]
  5. SENNA [Concomitant]
  6. OXYCODONE HCL [Concomitant]
  7. GLYBURIDE [Concomitant]
  8. RISPERIDONE [Concomitant]
  9. IPRATROPIUM BROMIDE [Concomitant]
  10. OMEPRAZOLE [Concomitant]
  11. DOXAZOSIN [Concomitant]
  12. ASPIRIN [Concomitant]
  13. ENOXAPARIN [Concomitant]

REACTIONS (1)
  - HYPOGLYCAEMIA [None]
